FAERS Safety Report 20053671 (Version 1)
Quarter: 2021Q4

REPORT INFORMATION
  Report Type: Spontaneous
  Country: US (occurrence: US)
  Receive Date: 20211110
  Receipt Date: 20211110
  Transmission Date: 20220304
  Serious: Yes (Hospitalization, Other)
  Sender: FDA-Public Use
  Company Number: US-INTRA-CELLULAR THERAPIES, INC.-2021ICT00504

PATIENT
  Sex: Male
  Weight: 76.19 kg

DRUGS (5)
  1. CAPLYTA [Suspect]
     Active Substance: LUMATEPERONE
     Indication: Bipolar I disorder
     Dosage: 42 MG, 1X/DAY
     Route: 048
     Dates: start: 20210915, end: 202109
  2. CAPLYTA [Suspect]
     Active Substance: LUMATEPERONE
     Indication: Anxiety
  3. HALDOL [Suspect]
     Active Substance: HALOPERIDOL
     Dosage: UNK
     Dates: start: 202109
  4. THORAZINE [Suspect]
     Active Substance: CHLORPROMAZINE
     Dosage: UNK
     Dates: start: 202109
  5. BUSPAR [Concomitant]
     Active Substance: BUSPIRONE HYDROCHLORIDE

REACTIONS (19)
  - Neuroleptic malignant syndrome [Recovered/Resolved]
  - Swollen tongue [Recovered/Resolved]
  - Dysphagia [Recovered/Resolved]
  - Dyspnoea [Recovered/Resolved]
  - Dyskinesia [Recovered/Resolved]
  - Eyelid disorder [Recovered/Resolved]
  - Blepharospasm [Recovered/Resolved]
  - Nystagmus [Recovered/Resolved]
  - Seizure [Recovered/Resolved]
  - Nervousness [Recovered/Resolved]
  - Intentional self-injury [Recovered/Resolved]
  - Weight decreased [Unknown]
  - Concussion [Recovered/Resolved]
  - Brain injury [Recovered/Resolved]
  - Memory impairment [Recovering/Resolving]
  - Catatonia [Recovered/Resolved]
  - Hallucination [Recovered/Resolved]
  - Cotard^s syndrome [Recovered/Resolved]
  - Off label use [Recovered/Resolved]

NARRATIVE: CASE EVENT DATE: 20210101
